FAERS Safety Report 5577617-4 (Version None)
Quarter: 2007Q4

REPORT INFORMATION
  Report Type: 
  Country: None (occurrence: None)
  Receive Date: 20071231
  Receipt Date: 20071221
  Transmission Date: 20080405
  Serious: Yes (Other)
  Sender: FDA-Public Use
  Company Number: PHBS2007SE20477

PATIENT
  Age: 80 Year
  Sex: Female

DRUGS (3)
  1. ZELNORM [Suspect]
     Indication: CONSTIPATION
     Dosage: 2 TAB/DAY
     Route: 048
     Dates: start: 20060101
  2. ZELNORM [Suspect]
     Dosage: 1 TAB/DAY
     Route: 048
     Dates: end: 20071201
  3. ANTIHYPERTENSIVES [Concomitant]

REACTIONS (5)
  - CONSTIPATION [None]
  - DISEASE RECURRENCE [None]
  - EXTRASYSTOLES [None]
  - HEART RATE IRREGULAR [None]
  - VERTIGO [None]
